FAERS Safety Report 26001338 (Version 2)
Quarter: 2025Q4

REPORT INFORMATION
  Report Type: Spontaneous
  Country: GB (occurrence: GB)
  Receive Date: 20251105
  Receipt Date: 20251208
  Transmission Date: 20260118
  Serious: Yes (Disabling, Other)
  Sender: ALCON
  Company Number: GB-ALCON LABORATORIES-ALC2025GB006085

PATIENT

DRUGS (2)
  1. LATANOPROST [Suspect]
     Active Substance: LATANOPROST
     Indication: Product used for unknown indication
     Dosage: 1 DROP IN THE EVENING (BOTH EYES)
     Dates: start: 202508, end: 202510
  2. NETARSUDIL MESYLATE [Suspect]
     Active Substance: NETARSUDIL MESYLATE
     Indication: Product used for unknown indication
     Dosage: 1 DROP BOTH EYES IN THE EVENING
     Dates: start: 202508

REACTIONS (2)
  - Retinal disorder [Not Recovered/Not Resolved]
  - Eye irritation [Unknown]

NARRATIVE: CASE EVENT DATE: 20250801
